FAERS Safety Report 5330294-X (Version None)
Quarter: 2007Q2

REPORT INFORMATION
  Report Type: 
  Country: None (occurrence: None)
  Receive Date: 20070521
  Receipt Date: 20070510
  Transmission Date: 20071010
  Serious: Yes (Death)
  Sender: FDA-Public Use
  Company Number: HQWYE805224APR07

PATIENT
  Sex: Female

DRUGS (14)
  1. CORDARONE [Suspect]
     Indication: LEFT VENTRICULAR FAILURE
     Route: 042
     Dates: start: 20070331, end: 20070331
  2. CORDARONE [Suspect]
     Indication: TACHYCARDIA
  3. ENALAPRIL [Concomitant]
     Indication: HYPERTENSION
     Dosage: 15 MG; FREQUENCY NOT SPECIFIED
     Route: 048
     Dates: end: 20070101
  4. ENALAPRIL [Concomitant]
     Indication: CARDIAC FAILURE
  5. GLIBENCLAMIDE [Concomitant]
     Indication: DIABETES MELLITUS
     Dosage: NOT SPECIFIED
     Route: 048
     Dates: end: 20070101
  6. STRONTIUM RANELATE [Concomitant]
     Indication: OSTEOPOROSIS
     Route: 048
     Dates: end: 20070101
  7. SYMBICORT [Concomitant]
     Indication: CHRONIC OBSTRUCTIVE PULMONARY DISEASE
     Dosage: 320/9 MCG; FREQUENCY NOT SPECIFIED
     Route: 048
     Dates: end: 20070101
  8. THIAMAZOLE [Concomitant]
     Indication: TOXIC NODULAR GOITRE
     Route: 048
     Dates: end: 20070101
  9. TORSEMIDE [Concomitant]
     Indication: HYPERTENSION
     Route: 048
     Dates: end: 20070101
  10. TORSEMIDE [Concomitant]
     Indication: CARDIAC FAILURE
  11. ASS ^CT-ARZNEIMITTEL^ [Concomitant]
     Indication: ATRIAL FIBRILLATION
     Route: 048
     Dates: end: 20070101
  12. ASS ^CT-ARZNEIMITTEL^ [Concomitant]
     Indication: HYPERTENSION
  13. ASS ^CT-ARZNEIMITTEL^ [Concomitant]
     Indication: CARDIAC FAILURE
  14. MOLSIDOMINE [Concomitant]
     Indication: CORONARY ARTERY DISEASE
     Dosage: 16 MG; FREQUENCY NOT SPECIFIED
     Route: 048
     Dates: end: 20070101

REACTIONS (1)
  - ACUTE HEPATIC FAILURE [None]
